FAERS Safety Report 18306340 (Version 1)
Quarter: 2020Q3

REPORT INFORMATION
  Report Type: Other
  Country: FR (occurrence: FR)
  Receive Date: 20200924
  Receipt Date: 20200924
  Transmission Date: 20201103
  Serious: Yes (Hospitalization)
  Sender: FDA-Public Use
  Company Number: FR-CADILA HEALTHCARE LIMITED-FR-ZYDUS-027144

PATIENT

DRUGS (12)
  1. HYDROCHLOROTHIAZIDE W/RAMIPRIL [Concomitant]
     Active Substance: HYDROCHLOROTHIAZIDE\RAMIPRIL
     Indication: PRODUCT USED FOR UNKNOWN INDICATION
     Route: 048
  2. MELAXOSE [Concomitant]
     Active Substance: LACTULOSE\PARAFFIN
     Indication: PRODUCT USED FOR UNKNOWN INDICATION
     Dosage: DOSAGE FORM: UNSPECIFIED ()
     Route: 048
  3. KALEORID [Concomitant]
     Active Substance: POTASSIUM CHLORIDE
     Indication: PRODUCT USED FOR UNKNOWN INDICATION
     Dosage: DOSAGE FORM: UNSPECIFIED ()
     Route: 048
  4. RISPERDAL [Suspect]
     Active Substance: RISPERIDONE
     Indication: PRODUCT USED FOR UNKNOWN INDICATION
     Dosage: .5 MILLIGRAM,DOSAGE FORM: UNSPECIFIED, WITH 2.5 MG OF CUMULATIVE DOSE,(INTERVAL :1 DAYS)
     Route: 048
     Dates: start: 20160624, end: 20160629
  5. CORDARONE [Concomitant]
     Active Substance: AMIODARONE HYDROCHLORIDE
     Indication: PRODUCT USED FOR UNKNOWN INDICATION
     Dosage: DOSAGE FORM: UNSPECIFIED ()
     Route: 048
  6. LASILIX [Concomitant]
     Active Substance: FUROSEMIDE
     Indication: PRODUCT USED FOR UNKNOWN INDICATION
     Dosage: 20 MILLIGRAM,DOSAGE FORM: UNSPECIFIED
     Route: 048
  7. PAROXETINE. [Suspect]
     Active Substance: PAROXETINE
     Indication: PRODUCT USED FOR UNKNOWN INDICATION
     Dosage: 20 MILLIGRAM,(INTERVAL :1 DAYS)
     Route: 048
     Dates: end: 20160629
  8. RISPERDAL [Suspect]
     Active Substance: RISPERIDONE
     Indication: PRODUCT USED FOR UNKNOWN INDICATION
     Dosage: .5 MILLIGRAM,DOSAGE FORM: UNSPECIFIED, WITH 2.5 MG OF CUMULATIVE DOSE,(INTERVAL :1 DAYS)
     Route: 048
     Dates: start: 20160624, end: 20160629
  9. XANAX [Suspect]
     Active Substance: ALPRAZOLAM
     Indication: PRODUCT USED FOR UNKNOWN INDICATION
     Dosage: .5 DOSAGE FORM,DOSAGE FORM: UNSPECIFIED
     Route: 048
  10. BISOPROLOL [Concomitant]
     Active Substance: BISOPROLOL
     Indication: PRODUCT USED FOR UNKNOWN INDICATION
     Dosage: DOSAGE FORM: UNSPECIFIED ()
     Route: 048
  11. KALEORID [Concomitant]
     Active Substance: POTASSIUM CHLORIDE
     Dosage: DOSAGE FORM: UNSPECIFIED
     Route: 048
  12. IXPRIM [Suspect]
     Active Substance: ACETAMINOPHEN\TRAMADOL HYDROCHLORIDE
     Indication: PRODUCT USED FOR UNKNOWN INDICATION
     Dosage: ()
     Route: 048
     Dates: end: 20160629

REACTIONS (5)
  - Aggression [Recovered/Resolved]
  - Agitation [Recovered/Resolved]
  - Disorientation [Recovered/Resolved]
  - Altered visual depth perception [Recovered/Resolved]
  - Delusion [Recovered/Resolved]

NARRATIVE: CASE EVENT DATE: 20160628
